FAERS Safety Report 17767696 (Version 2)
Quarter: 2024Q4

REPORT INFORMATION
  Report Type: Spontaneous
  Country: JP (occurrence: JP)
  Receive Date: 20200511
  Receipt Date: 20241219
  Transmission Date: 20250115
  Serious: Yes (Death, Hospitalization)
  Sender: NOVARTIS
  Company Number: JP-NOVARTISPH-NVSJ2020JP004852

PATIENT
  Age: 77 Year
  Sex: Male

DRUGS (6)
  1. TAFINLAR [Suspect]
     Active Substance: DABRAFENIB MESYLATE
     Indication: Malignant melanoma
     Dosage: 300 MG, ADMINISTRATION VIA TUBE
     Route: 050
  2. TAFINLAR [Suspect]
     Active Substance: DABRAFENIB MESYLATE
     Indication: BRAF V600E mutation positive
  3. MEKINIST [Suspect]
     Active Substance: TRAMETINIB DIMETHYL SULFOXIDE
     Indication: Malignant melanoma
     Dosage: 2 MG, ADMINISTRATION VIA TUBE
     Route: 050
  4. MEKINIST [Suspect]
     Active Substance: TRAMETINIB DIMETHYL SULFOXIDE
     Indication: BRAF V600E mutation positive
  5. PREDNISOLONE [Concomitant]
     Active Substance: PREDNISOLONE
     Indication: Product used for unknown indication
     Dosage: 20 MG
     Route: 065
  6. PARACETA [Concomitant]
     Indication: Product used for unknown indication
     Dosage: 500 MG
     Route: 065

REACTIONS (3)
  - Pneumonia [Fatal]
  - Pyrexia [Fatal]
  - Incorrect route of product administration [Unknown]
